FAERS Safety Report 18371421 (Version 2)
Quarter: 2020Q4

REPORT INFORMATION
  Report Type: Spontaneous
  Country: MX (occurrence: MX)
  Receive Date: 20201012
  Receipt Date: 20201026
  Transmission Date: 20210114
  Serious: Yes (Other)
  Sender: FDA-Public Use
  Company Number: MX-LUPIN PHARMACEUTICALS INC.-2020-07054

PATIENT
  Age: 10 Year
  Sex: Male

DRUGS (19)
  1. TOPIRAMAT [Suspect]
     Active Substance: TOPIRAMATE
     Indication: ATONIC SEIZURES
     Dosage: UNK
     Route: 005
  2. PHENOBARBITAL. [Suspect]
     Active Substance: PHENOBARBITAL
     Indication: ATONIC SEIZURES
     Dosage: UNK
     Route: 065
  3. VICTAN [Suspect]
     Active Substance: ETHYL LOFLAZEPATE
     Indication: ATONIC SEIZURES
     Dosage: UNK
     Route: 048
  4. OLANZAPINE. [Suspect]
     Active Substance: OLANZAPINE
     Indication: ATONIC SEIZURES
     Dosage: UNK
     Route: 065
  5. CLONIDINE. [Suspect]
     Active Substance: CLONIDINE
     Dosage: TABLET
     Route: 048
  6. LEVOTHYROXINE. [Concomitant]
     Active Substance: LEVOTHYROXINE
     Indication: HYPOTHYROIDISM
     Dosage: UNK
     Route: 065
  7. GAMMA GLOBULIN [Concomitant]
     Active Substance: IMMUNE GLOBULIN NOS
     Indication: IMMUNODEFICIENCY
     Dosage: UNK
     Route: 065
  8. LEVETIRACETAM. [Suspect]
     Active Substance: LEVETIRACETAM
     Indication: ATONIC SEIZURES
     Dosage: ORAL SUSPENSION
     Route: 048
  9. QUETIAPINE FUMARATE. [Suspect]
     Active Substance: QUETIAPINE FUMARATE
     Indication: INFANTILE SPASMS
  10. HALOPERIDOL. [Suspect]
     Active Substance: HALOPERIDOL
     Indication: ATONIC SEIZURES
     Dosage: UNK
     Route: 065
  11. ATOMOXETINE. [Suspect]
     Active Substance: ATOMOXETINE HYDROCHLORIDE
     Indication: ATONIC SEIZURES
     Dosage: UNK
     Route: 065
  12. LEVETIRACETAM. [Suspect]
     Active Substance: LEVETIRACETAM
     Indication: INFANTILE SPASMS
  13. ARIPIPRAZOLE. [Suspect]
     Active Substance: ARIPIPRAZOLE
     Indication: ATONIC SEIZURES
     Dosage: TABLET
     Route: 048
  14. QUETIAPINE FUMARATE. [Suspect]
     Active Substance: QUETIAPINE FUMARATE
     Indication: ATONIC SEIZURES
     Dosage: UNK, TABLET
     Route: 048
  15. PHENYTOIN SODIUM. [Suspect]
     Active Substance: PHENYTOIN SODIUM
     Indication: ATONIC SEIZURES
     Dosage: SUSPENSION LIQUID
     Route: 048
  16. SERTRALINE [Suspect]
     Active Substance: SERTRALINE HYDROCHLORIDE
     Indication: ATONIC SEIZURES
     Dosage: UNK
     Route: 065
  17. MIRTAZAPINE. [Suspect]
     Active Substance: MIRTAZAPINE
     Indication: ATONIC SEIZURES
     Dosage: UNK, TABLET
     Route: 048
  18. MIRTAZAPINE. [Suspect]
     Active Substance: MIRTAZAPINE
     Indication: INFANTILE SPASMS
  19. PREGABALIN. [Suspect]
     Active Substance: PREGABALIN
     Indication: ATONIC SEIZURES
     Route: 065

REACTIONS (6)
  - Hallucination [Recovered/Resolved]
  - Constipation [Recovered/Resolved]
  - Insomnia [Recovered/Resolved]
  - Drug ineffective [Unknown]
  - Tremor [Recovered/Resolved]
  - Irritability [Recovered/Resolved]
